FAERS Safety Report 9347807 (Version 1)
Quarter: 2013Q2

REPORT INFORMATION
  Report Type: Spontaneous
  Country: US (occurrence: US)
  Receive Date: 20130614
  Receipt Date: 20130614
  Transmission Date: 20140414
  Serious: No
  Sender: FDA-Public Use
  Company Number: US-PFIZER INC-2013171894

PATIENT
  Age: 76 Year
  Sex: Female
  Weight: 104.3 kg

DRUGS (8)
  1. OXYCODONE HYDROCHLORIDE [Suspect]
     Dosage: UNK
  2. PERCOCET [Suspect]
     Dosage: 30 MG, UNK
  3. TYLENOL [Suspect]
     Dosage: UNK
  4. SYNTHROID [Concomitant]
     Dosage: 150 MCG, UNK
  5. LEXAPRO [Concomitant]
     Dosage: 20 MG, UNK
  6. WELLBUTRIN SR [Concomitant]
     Dosage: 150 MG, UNK
  7. DILTIAZEM [Concomitant]
     Dosage: 240 MG, UNK
  8. OMEPRAZOLE [Concomitant]
     Dosage: UNK

REACTIONS (1)
  - Hepatic cyst [Unknown]
